FAERS Safety Report 23210840 (Version 1)
Quarter: 2023Q4

REPORT INFORMATION
  Report Type: Spontaneous
  Country: EU (occurrence: EU)
  Receive Date: 20231121
  Receipt Date: 20231121
  Transmission Date: 20240110
  Serious: Yes (Hospitalization)
  Sender: FDA-Public Use
  Company Number: None

PATIENT
  Weight: 73 kg

DRUGS (4)
  1. BUPRENORPHINE HYDROCHLORIDE [Interacting]
     Active Substance: BUPRENORPHINE HYDROCHLORIDE
     Indication: Drug dependence
     Route: 048
     Dates: start: 202308
  2. NICOTINE [Concomitant]
     Active Substance: NICOTINE
  3. SERTRALINE HYDROCHLORIDE [Interacting]
     Active Substance: SERTRALINE HYDROCHLORIDE
     Indication: Product used for unknown indication
     Route: 048
     Dates: start: 202301, end: 20231012
  4. CHLORHYDRATE D^OXYBUTYNINE,OXYBUTYNINE (CHLORHYDRATE D^) [Concomitant]

REACTIONS (3)
  - Myoclonus [Recovered/Resolved]
  - Tonic convulsion [Recovered/Resolved]
  - Hyperhidrosis [Recovered/Resolved]

NARRATIVE: CASE EVENT DATE: 20230101
